FAERS Safety Report 6683309-0 (Version None)
Quarter: 2010Q2

REPORT INFORMATION
  Report Type: 
  Country: None (occurrence: None)
  Receive Date: 20100415
  Receipt Date: 20100407
  Transmission Date: 20101027
  Serious: Yes (Hospitalization)
  Sender: FDA-Public Use
  Company Number: GXKR2010US03945

PATIENT
  Age: 23 Year
  Sex: Female

DRUGS (2)
  1. HYDROXYCHLOROQUINE (NGX) [Suspect]
     Indication: SYSTEMIC LUPUS ERYTHEMATOSUS
     Route: 065
  2. MERCAPTOPURINE [Suspect]
     Indication: SYSTEMIC LUPUS ERYTHEMATOSUS
     Route: 065

REACTIONS (5)
  - DEPRESSED LEVEL OF CONSCIOUSNESS [None]
  - RASH [None]
  - REVERSIBLE POSTERIOR LEUKOENCEPHALOPATHY SYNDROME [None]
  - SPEECH DISORDER [None]
  - UNRESPONSIVE TO STIMULI [None]
